FAERS Safety Report 10178346 (Version 1)
Quarter: 2014Q2

REPORT INFORMATION
  Report Type: Spontaneous
  Country: US (occurrence: None)
  Receive Date: 20140516
  Receipt Date: 20140516
  Transmission Date: 20141212
  Serious: Yes (Life-Threatening, Hospitalization)
  Sender: FDA-Public Use
  Company Number: None

PATIENT
  Age: 22 Year
  Sex: Female
  Weight: 58.97 kg

DRUGS (3)
  1. NUVARING [Suspect]
     Indication: MENSTRUATION IRREGULAR
     Dosage: 1 RING?EVERY 3 WEEKS?
     Route: 067
     Dates: start: 20140419, end: 20140420
  2. VITAMIN D [Concomitant]
  3. MYOMIN [Concomitant]

REACTIONS (1)
  - Cerebral thrombosis [None]
